FAERS Safety Report 21208719 (Version 1)
Quarter: 2022Q3

REPORT INFORMATION
  Report Type: Spontaneous
  Country: CN (occurrence: CN)
  Receive Date: 20220812
  Receipt Date: 20220812
  Transmission Date: 20221026
  Serious: Yes (Hospitalization)
  Sender: FDA-Public Use
  Company Number: CN-SCALL-2022-CN-000239

PATIENT
  Age: 26 Year
  Sex: Male
  Weight: 67 kg

DRUGS (4)
  1. RABEPRAZOLE SODIUM [Suspect]
     Active Substance: RABEPRAZOLE SODIUM
     Indication: Hyperchlorhydria
     Dosage: (1 DOSAGE FORMS,1 D)
     Route: 048
     Dates: start: 20200929, end: 20201005
  2. ZYRTEC [Suspect]
     Active Substance: CETIRIZINE HYDROCHLORIDE
     Dosage: (1 DOSAGE FORMS,1 D)
     Route: 048
     Dates: start: 20200929, end: 20201013
  3. GLUCOSE,A20070507 [Concomitant]
     Dosage: (100 ML,1 D)
     Route: 042
     Dates: start: 20201006, end: 20201009
  4. DEXAMETHASONE SODIUM PHOSPHATE [Suspect]
     Active Substance: DEXAMETHASONE SODIUM PHOSPHATE
     Dosage: (10 MG,1 D), (5 MG,1 D),(2.5 MG,1 D), (REDUCED DOSE AND FREQUENCY UNKNOWN)
     Route: 042
     Dates: start: 20201013

REACTIONS (1)
  - Liver injury [Unknown]

NARRATIVE: CASE EVENT DATE: 20201008
